FAERS Safety Report 16805734 (Version 1)
Quarter: 2019Q3

REPORT INFORMATION
  Report Type: Spontaneous
  Country: US (occurrence: US)
  Receive Date: 20190913
  Receipt Date: 20190913
  Transmission Date: 20191005
  Serious: No
  Sender: FDA-Public Use
  Company Number: US-IPSEN BIOPHARMACEUTICALS, INC.-2019-16358

PATIENT
  Sex: Female

DRUGS (2)
  1. SOMATULINE DEPOT [Suspect]
     Active Substance: LANREOTIDE ACETATE
     Indication: GASTROENTEROPANCREATIC NEUROENDOCRINE TUMOUR DISEASE
     Route: 030
  2. OCTREOTIDE. [Concomitant]
     Active Substance: OCTREOTIDE

REACTIONS (12)
  - Injection site mass [Unknown]
  - Dizziness [Unknown]
  - Blood pressure increased [Unknown]
  - Muscle spasms [Unknown]
  - Abdominal pain [Recovered/Resolved]
  - Head discomfort [Unknown]
  - Injection site rash [Unknown]
  - Tachycardia [Unknown]
  - Fatigue [Unknown]
  - Injection site pruritus [Unknown]
  - Balance disorder [Unknown]
  - Chest pain [Unknown]
